FAERS Safety Report 7569028-7 (Version None)
Quarter: 2011Q2

REPORT INFORMATION
  Report Type: 
  Country: None (occurrence: None)
  Receive Date: 20110623
  Receipt Date: 20110621
  Transmission Date: 20111010
  Serious: Yes (Other)
  Sender: FDA-Public Use
  Company Number: ES-PFIZER INC-2011116218

PATIENT
  Age: 35 Year
  Sex: Female

DRUGS (3)
  1. VARENICLINE TARTRATE [Suspect]
     Dosage: 0.5 MG, 2X/DAY
     Dates: start: 20110331, end: 20110503
  2. VARENICLINE TARTRATE [Suspect]
     Dosage: 1 MG, 2X/DAY
     Dates: start: 20110504, end: 20110618
  3. VARENICLINE TARTRATE [Suspect]
     Indication: SMOKING CESSATION THERAPY
     Dosage: 0.5 MG, 1X/DAY
     Dates: start: 20110328, end: 20110330

REACTIONS (4)
  - ASPHYXIA [None]
  - NAUSEA [None]
  - INSOMNIA [None]
  - MOOD ALTERED [None]
